FAERS Safety Report 15245887 (Version 1)
Quarter: 2018Q3

REPORT INFORMATION
  Report Type: Report from Study
  Country: CO (occurrence: CO)
  Receive Date: 20180806
  Receipt Date: 20180806
  Transmission Date: 20181010
  Serious: Yes (Hospitalization, Other)
  Sender: FDA-Public Use
  Company Number: PHHY2018CO047162

PATIENT
  Age: 61 Year
  Sex: Male
  Weight: 58 kg

DRUGS (1)
  1. ENTRESTO [Suspect]
     Active Substance: SACUBITRIL\VALSARTAN
     Indication: CARDIAC FAILURE
     Dosage: 50 MG (24 MG SACUBITRIL, 26 MG VALSARTAN), Q12H
     Route: 048
     Dates: start: 20180513

REACTIONS (8)
  - Choking sensation [Unknown]
  - Fatigue [Unknown]
  - Therapeutic response decreased [Unknown]
  - Chest pain [Unknown]
  - Pulmonary oedema [Unknown]
  - Dyspnoea [Unknown]
  - Pulmonary pain [Unknown]
  - Asthenia [Unknown]

NARRATIVE: CASE EVENT DATE: 20180723
